FAERS Safety Report 25028818 (Version 1)
Quarter: 2025Q1

REPORT INFORMATION
  Report Type: Spontaneous
  Country: US (occurrence: US)
  Receive Date: 20250302
  Receipt Date: 20250302
  Transmission Date: 20250408
  Serious: Yes (Hospitalization, Other)
  Sender: AMGEN
  Company Number: US-AMGEN-USASP2025036402

PATIENT
  Age: 41 Year
  Sex: Female

DRUGS (4)
  1. BEVACIZUMAB [Suspect]
     Active Substance: BEVACIZUMAB
     Indication: Squamous cell carcinoma of the cervix
     Route: 065
  2. CARBOPLATIN [Concomitant]
     Active Substance: CARBOPLATIN
     Indication: Squamous cell carcinoma of the cervix
     Route: 065
  3. PACLITAXEL [Concomitant]
     Active Substance: PACLITAXEL
     Indication: Squamous cell carcinoma of the cervix
     Route: 065
  4. PEMBROLIZUMAB [Concomitant]
     Active Substance: PEMBROLIZUMAB
     Indication: Squamous cell carcinoma of the cervix
     Route: 065

REACTIONS (8)
  - Atrial fibrillation [Unknown]
  - Metastases to gastrointestinal tract [Unknown]
  - Metastases to lung [Unknown]
  - Splenic infarction [Unknown]
  - Splenomegaly [Unknown]
  - Pelvic fluid collection [Unknown]
  - Malnutrition [Unknown]
  - Anaemia [Unknown]
